FAERS Safety Report 10557802 (Version 2)
Quarter: 2016Q1

REPORT INFORMATION
  Report Type: Spontaneous
  Country: GB (occurrence: GB)
  Receive Date: 20141031
  Receipt Date: 20160323
  Transmission Date: 20160525
  Serious: Yes (Other)
  Sender: FDA-Public Use
  Company Number: GB-PFIZER INC-2014299230

PATIENT
  Age: 35 Year
  Sex: Female
  Weight: 120.2 kg

DRUGS (1)
  1. MISOPROSTOL. [Suspect]
     Active Substance: MISOPROSTOL
     Indication: UTERINE DILATION AND EVACUATION
     Dosage: 400 UG, SINGLE
     Route: 060
     Dates: start: 20141020, end: 20141020

REACTIONS (5)
  - Pharyngeal oedema [Recovering/Resolving]
  - Hypoaesthesia [Recovering/Resolving]
  - Paraesthesia oral [Recovering/Resolving]
  - Product use issue [Unknown]
  - Oropharyngeal pain [Recovering/Resolving]

NARRATIVE: CASE EVENT DATE: 20141020
